FAERS Safety Report 6151163-1 (Version None)
Quarter: 2009Q2

REPORT INFORMATION
  Report Type: 
  Country: None (occurrence: None)
  Receive Date: 20090410
  Receipt Date: 20090331
  Transmission Date: 20091009
  Serious: Yes (Other)
  Sender: FDA-Public Use
  Company Number: US-PFIZER INC-2009190840

PATIENT
  Age: 18 Year
  Sex: Female
  Weight: 70.3 kg

DRUGS (4)
  1. DEPO-PROVERA [Suspect]
     Indication: OFF LABEL USE
     Dosage: 1 SHOT; EVERY 3 MONTHS
     Route: 051
     Dates: start: 20060101
  2. DEPO-PROVERA [Suspect]
     Indication: DYSMENORRHOEA
  3. RAVPAL-PEG [Suspect]
     Indication: PHENYLKETONURIA
     Dosage: 0.01 MG/KG, 1X
     Route: 058
     Dates: start: 20081006, end: 20081006
  4. HUMAN PAPILLOMAVIRUS VACCINE [Concomitant]

REACTIONS (9)
  - ANAPHYLACTIC REACTION [None]
  - CHILLS [None]
  - DYSPNOEA [None]
  - HYPERSENSITIVITY [None]
  - OROPHARYNGEAL PAIN [None]
  - PAIN IN EXTREMITY [None]
  - PRURITUS [None]
  - URTICARIA [None]
  - WHEEZING [None]
